FAERS Safety Report 8211447-X (Version None)
Quarter: 2012Q1

REPORT INFORMATION
  Report Type: 
  Country: None (occurrence: None)
  Receive Date: 20120315
  Receipt Date: 20120306
  Transmission Date: 20120608
  Serious: No
  Sender: FDA-Public Use
  Company Number: US-BAYER-2012-024811

PATIENT
  Sex: Female

DRUGS (3)
  1. TYLENOL COLD MULTI-SYMPTOM SEVERE [Concomitant]
  2. COUGH SYRUP [Concomitant]
  3. ALEVE (CAPLET) [Suspect]
     Indication: PRODUCT USED FOR UNKNOWN INDICATION
     Dosage: 3 DF, UNK
     Route: 048

REACTIONS (1)
  - NO ADVERSE EVENT [None]
